FAERS Safety Report 8308933-0 (Version None)
Quarter: 2012Q2

REPORT INFORMATION
  Report Type: 
  Country: None (occurrence: None)
  Receive Date: 20120424
  Receipt Date: 20120418
  Transmission Date: 20120825
  Serious: Yes (Hospitalization)
  Sender: FDA-Public Use
  Company Number: AU-B.I. PHARMACEUTICALS,INC./RIDGEFIELD-2012-AU-00720AU

PATIENT
  Sex: Female
  Weight: 69 kg

DRUGS (11)
  1. ACETAMINOPHEN [Concomitant]
  2. SIMVASTATIN [Concomitant]
     Dosage: 40 MG
  3. ALLOPURINOL [Concomitant]
     Dosage: 50 MG
  4. SERTRALINE HYDROCHLORIDE [Concomitant]
     Dosage: 50 MG
  5. OMEPRAZOLE [Concomitant]
     Dosage: 20 MG
  6. PRADAXA [Suspect]
     Indication: CEREBROVASCULAR ACCIDENT PROPHYLAXIS
  7. DIGOXIN [Concomitant]
     Dosage: 62.5 MCG
  8. PRADAXA [Suspect]
     Indication: ATRIAL FIBRILLATION
     Dosage: 220 MG
     Dates: end: 20110905
  9. TELMISARTAN [Concomitant]
     Dosage: 80 MG
  10. HYDROCHLORTHIAZIDE [Concomitant]
     Dosage: 25 MG
  11. VERAPAMIL [Concomitant]
     Dosage: 240 MG

REACTIONS (2)
  - DYSPEPSIA [None]
  - CEREBROVASCULAR ACCIDENT [None]
